FAERS Safety Report 15041940 (Version 1)
Quarter: 2018Q2

REPORT INFORMATION
  Report Type: Spontaneous
  Country: US (occurrence: US)
  Receive Date: 20180621
  Receipt Date: 20180621
  Transmission Date: 20180711
  Serious: Yes (Hospitalization)
  Sender: FDA-Public Use
  Company Number: US-ROCHE-2136595

PATIENT
  Sex: Male

DRUGS (1)
  1. XOLAIR [Suspect]
     Active Substance: OMALIZUMAB
     Indication: ASTHMA
     Route: 065

REACTIONS (6)
  - Hypersensitivity [Unknown]
  - Mental disorder [Unknown]
  - Myalgia [Unknown]
  - Hypertension [Unknown]
  - Dyspnoea [Unknown]
  - Hyponatraemia [Unknown]
